FAERS Safety Report 13058446 (Version 1)
Quarter: 2016Q4

REPORT INFORMATION
  Report Type: Spontaneous
  Country: US (occurrence: US)
  Receive Date: 20161223
  Receipt Date: 20161223
  Transmission Date: 20170207
  Serious: No
  Sender: FDA-Public Use
  Company Number: US-BAUSCH-BL-2016-003048

PATIENT
  Age: 45 Year
  Sex: Female
  Weight: 51.3 kg

DRUGS (2)
  1. XENAZINE [Suspect]
     Active Substance: TETRABENAZINE
     Indication: HUNTINGTON^S DISEASE
     Route: 048
     Dates: start: 201502, end: 20160130
  2. XENAZINE [Suspect]
     Active Substance: TETRABENAZINE
     Route: 048
     Dates: start: 20160201

REACTIONS (4)
  - Confusional state [Unknown]
  - Tremor [Unknown]
  - Drug dose omission [Unknown]
  - Dyskinesia [Unknown]

NARRATIVE: CASE EVENT DATE: 20160130
